FAERS Safety Report 7290140 (Version 15)
Quarter: 2014Q3

REPORT INFORMATION
  Report Type: Spontaneous
  Country: US (occurrence: US)
  Receive Date: 20100223
  Receipt Date: 20140919
  Transmission Date: 20150326
  Serious: Yes (Other)
  Sender: FDA-Public Use
  Company Number: PHEH2010US02437

PATIENT
  Age: 55 Year
  Sex: Female
  Weight: 74.38 kg

DRUGS (19)
  1. ADRIAMYCIN [Concomitant]
     Active Substance: DOXORUBICIN HYDROCHLORIDE
  2. FEMARA [Concomitant]
     Active Substance: LETROZOLE
     Dosage: 2.5 MG, QD
     Route: 048
  3. TORSEMIDE. [Concomitant]
     Active Substance: TORSEMIDE
  4. PROCRIT [Concomitant]
     Active Substance: ERYTHROPOIETIN
  5. CLEOCIN [Concomitant]
     Active Substance: CLINDAMYCIN PHOSPHATE
  6. ZOMETA [Suspect]
     Active Substance: ZOLEDRONIC ACID
     Indication: BREAST CANCER
  7. FASLODEX [Concomitant]
     Active Substance: FULVESTRANT
  8. VICODIN [Concomitant]
     Active Substance: ACETAMINOPHEN\HYDROCODONE BITARTRATE
  9. ZOMETA [Suspect]
     Active Substance: ZOLEDRONIC ACID
     Indication: METASTASES TO BONE
  10. LISINOPRIL. [Concomitant]
     Active Substance: LISINOPRIL
  11. KLOR-CON [Concomitant]
     Active Substance: POTASSIUM CHLORIDE
  12. ARANESP [Concomitant]
     Active Substance: DARBEPOETIN ALFA
  13. COREG [Concomitant]
     Active Substance: CARVEDILOL
  14. TAXOTERE [Suspect]
     Active Substance: DOCETAXEL
     Dosage: 58 MG, QW
  15. CARBOPLATIN. [Concomitant]
     Active Substance: CARBOPLATIN
  16. ZOFRAN [Concomitant]
     Active Substance: ONDANSETRON HYDROCHLORIDE
  17. ZOMETA [Suspect]
     Active Substance: ZOLEDRONIC ACID
     Indication: HYPERCALCAEMIA OF MALIGNANCY
     Dosage: 4 MG, QMO
     Route: 042
     Dates: start: 200312, end: 200702
  18. HERCEPTIN [Suspect]
     Active Substance: TRASTUZUMAB
     Dosage: 162 MG, QW
     Dates: end: 20070611
  19. DECADRON [Concomitant]
     Active Substance: DEXAMETHASONE

REACTIONS (89)
  - Tooth infection [Unknown]
  - Neuropathy peripheral [Unknown]
  - Hypoxia [Unknown]
  - Lymphoedema [Unknown]
  - Hepatic cyst [Unknown]
  - Cardiomegaly [Unknown]
  - Diastolic dysfunction [Unknown]
  - Syncope [Unknown]
  - Myalgia [Unknown]
  - Tooth loss [Unknown]
  - Injury [Unknown]
  - Impaired healing [Unknown]
  - Ecchymosis [Unknown]
  - Pruritus [Recovered/Resolved]
  - Lymph node calcification [Unknown]
  - Lymphatic disorder [Unknown]
  - Lymphopenia [Unknown]
  - Paraesthesia [Unknown]
  - Tooth fracture [Unknown]
  - Fluid retention [Unknown]
  - Ejection fraction decreased [Recovered/Resolved]
  - Pneumothorax [Unknown]
  - Osteosclerosis [Unknown]
  - Lung cyst [Unknown]
  - Pleural fibrosis [Unknown]
  - Angina pectoris [Unknown]
  - Arteriosclerosis coronary artery [Unknown]
  - Pleural calcification [Unknown]
  - Intervertebral disc degeneration [Unknown]
  - Ventricular hypokinesia [Unknown]
  - Osteonecrosis of jaw [Unknown]
  - Pleural effusion [Unknown]
  - Pericardial effusion [Unknown]
  - Nodule [Unknown]
  - Back pain [Unknown]
  - Jaw disorder [Unknown]
  - Emphysema [Unknown]
  - Atelectasis [Unknown]
  - Anaemia [Unknown]
  - Sinus tachycardia [Unknown]
  - Pneumonia [Unknown]
  - Metastases to lung [Unknown]
  - Rash [Recovered/Resolved]
  - Limb discomfort [Unknown]
  - Decreased interest [Unknown]
  - Cough [Unknown]
  - Osteomyelitis [Unknown]
  - Bone loss [Unknown]
  - Cardiac disorder [Unknown]
  - Cellulitis [Recovering/Resolving]
  - Bronchopleural fistula [Unknown]
  - Dyspnoea [Unknown]
  - Asphyxia [Unknown]
  - Nail disorder [Unknown]
  - Onychoclasis [Unknown]
  - Depression [Unknown]
  - Diarrhoea [Unknown]
  - Chest pain [Unknown]
  - Abdominal pain [Unknown]
  - Hypokalaemia [Unknown]
  - Hiatus hernia [Unknown]
  - Orthopnoea [Unknown]
  - Nasal congestion [Unknown]
  - Hypotension [Unknown]
  - Dysphonia [Unknown]
  - Dental caries [Unknown]
  - Primary sequestrum [Unknown]
  - Erythema [Not Recovered/Not Resolved]
  - Bronchiectasis [Unknown]
  - Musculoskeletal pain [Unknown]
  - Rib fracture [Unknown]
  - Fatigue [Unknown]
  - Pain [Unknown]
  - Left ventricular dysfunction [Unknown]
  - Pyrexia [Unknown]
  - Exposed bone in jaw [Unknown]
  - Fistula [Unknown]
  - Pathological fracture [Unknown]
  - Thrombocytopenia [Unknown]
  - Metastases to liver [Unknown]
  - Haemangioma of liver [Unknown]
  - Weight decreased [Unknown]
  - Urticaria [Unknown]
  - Mediastinal shift [Unknown]
  - Tachycardia [Unknown]
  - Monocytosis [Unknown]
  - Oropharyngeal pain [Unknown]
  - Nausea [Unknown]
  - Vomiting [Unknown]

NARRATIVE: CASE EVENT DATE: 201309
